FAERS Safety Report 9107433 (Version 3)
Quarter: 2013Q3

REPORT INFORMATION
  Report Type: Spontaneous
  Country: CA (occurrence: CA)
  Receive Date: 20130221
  Receipt Date: 20130916
  Transmission Date: 20140515
  Serious: Yes (Other)
  Sender: FDA-Public Use
  Company Number: PHHY2013CA016850

PATIENT
  Sex: Female
  Weight: 82 kg

DRUGS (6)
  1. ACLASTA [Suspect]
     Indication: OSTEOPOROSIS
     Dosage: 5 MG ANUALLY
     Route: 042
     Dates: start: 2010
  2. ACLASTA [Suspect]
     Indication: BONE DENSITY DECREASED
     Dosage: 5 MG ANUALLY
     Route: 042
     Dates: start: 2011
  3. EPREX [Concomitant]
     Dosage: UNK UKN, UNK
  4. SPIRIVA [Concomitant]
     Dosage: UNK UKN, UNK
  5. CARVEDILOL [Concomitant]
     Dosage: UNK UKN, UNK
  6. OMEPRAZOLE [Concomitant]
     Dosage: UNK UKN, UNK

REACTIONS (2)
  - Fracture [Unknown]
  - Osteonecrosis of jaw [Recovering/Resolving]
